FAERS Safety Report 21080553 (Version 1)
Quarter: 2022Q3

REPORT INFORMATION
  Report Type: Spontaneous
  Country: US (occurrence: US)
  Receive Date: 20220714
  Receipt Date: 20220714
  Transmission Date: 20221026
  Serious: No
  Sender: FDA-Public Use
  Company Number: US-RECKITT BENCKISER HEALTHCARE INT LIMITED-RB-080063-2022

PATIENT
  Age: 11 Year
  Sex: Male
  Weight: 40.363 kg

DRUGS (9)
  1. MUCINEX [Suspect]
     Active Substance: GUAIFENESIN
     Indication: Cough
     Dosage: UNK UNK, BID
     Route: 048
     Dates: start: 20211212, end: 20211212
  2. LAMOTRIGINE [Concomitant]
     Active Substance: LAMOTRIGINE
     Indication: Sleep disorder
     Dosage: 200 MILLIGRAM, QD
     Route: 065
  3. LAMOTRIGINE [Concomitant]
     Active Substance: LAMOTRIGINE
     Indication: Autism spectrum disorder
  4. GUANFACINE [Concomitant]
     Active Substance: GUANFACINE
     Indication: Sleep disorder
     Dosage: 3 MILLIGRAM, QD
     Route: 065
  5. MELATONIN [Concomitant]
     Active Substance: MELATONIN
     Indication: Sleep disorder
     Dosage: 3 MILLIGRAM
     Route: 065
  6. CLONIDINE HYDROCHLORIDE [Concomitant]
     Active Substance: CLONIDINE HYDROCHLORIDE
     Indication: Autism spectrum disorder
     Dosage: 0.3 MILLIGRAM, QD
     Route: 065
  7. TRAZODONE [Concomitant]
     Active Substance: TRAZODONE HYDROCHLORIDE
     Indication: Autism spectrum disorder
     Dosage: 50 MILLIGRAM, SINGLE
     Route: 065
  8. ATOMOXETINE HYDROCHLORIDE [Concomitant]
     Active Substance: ATOMOXETINE HYDROCHLORIDE
     Indication: Autism spectrum disorder
     Dosage: 60 MILLIGRAM, SINGLE
     Route: 065
  9. METHYLPHENIDATE [Concomitant]
     Active Substance: METHYLPHENIDATE
     Indication: Autism spectrum disorder
     Dosage: 20 MILLIGRAM, TID
     Route: 065

REACTIONS (6)
  - Product administered to patient of inappropriate age [Unknown]
  - Urticaria [Recovering/Resolving]
  - Rash macular [Recovering/Resolving]
  - Rash [Recovering/Resolving]
  - Erythema [Recovering/Resolving]
  - Pruritus [Recovering/Resolving]

NARRATIVE: CASE EVENT DATE: 20211212
